FAERS Safety Report 7421717-0 (Version None)
Quarter: 2011Q2

REPORT INFORMATION
  Report Type: 
  Country: None (occurrence: None)
  Receive Date: 20110418
  Receipt Date: 20101001
  Transmission Date: 20111010
  Serious: Yes (Life-Threatening, Hospitalization, Disabling, Other)
  Sender: FDA-Public Use
  Company Number: US-BAYER-201034402NA

PATIENT
  Age: 37 Year
  Sex: Female
  Weight: 58.957 kg

DRUGS (12)
  1. YASMIN [Suspect]
     Indication: CONTRACEPTION
     Dosage: 1 U, QD
     Dates: start: 20071201, end: 20080401
  2. YAZ [Suspect]
     Indication: CONTRACEPTION
     Dosage: 1 U, QD
     Dates: start: 20080401
  3. YASMIN [Suspect]
     Indication: PREMENSTRUAL SYNDROME
  4. TOPAMAX [Concomitant]
     Indication: MIGRAINE
     Dosage: UNK
     Dates: start: 20060101, end: 20090101
  5. LEXAPRO [Concomitant]
     Indication: ANXIETY
  6. LEVORA 0.15/30-21 [Concomitant]
     Dosage: UNK
     Dates: start: 20050801, end: 20070601
  7. PRILOSEC [Concomitant]
     Indication: GASTROOESOPHAGEAL REFLUX DISEASE
  8. ZEGERID [Concomitant]
     Indication: GASTROOESOPHAGEAL REFLUX DISEASE
     Dosage: UNK
     Dates: start: 20070101, end: 20090101
  9. YAZ [Suspect]
     Indication: PREMENSTRUAL SYNDROME
     Dosage: 1 U, QD
     Route: 048
     Dates: start: 20071001, end: 20071201
  10. YAZ [Suspect]
     Dosage: DAILY DOSE 1 U
     Route: 048
     Dates: start: 20081001, end: 20090401
  11. IMITREX [Concomitant]
     Indication: MIGRAINE
     Dosage: UNK
     Dates: start: 20060101, end: 20090101
  12. COREG [Concomitant]
     Indication: BLOOD PRESSURE MANAGEMENT

REACTIONS (21)
  - OEDEMA [None]
  - NEUROPATHY PERIPHERAL [None]
  - ARRHYTHMIA [None]
  - RESPIRATORY FAILURE [None]
  - RENAL FAILURE ACUTE [None]
  - ISCHAEMIC ULCER [None]
  - CARDIAC ARREST [None]
  - PULMONARY EMBOLISM [None]
  - CIRCULATORY COLLAPSE [None]
  - DYSPNOEA [None]
  - CHEST PAIN [None]
  - PNEUMONIA STAPHYLOCOCCAL [None]
  - HAEMATOMA [None]
  - ANXIETY [None]
  - ONYCHOMADESIS [None]
  - MULTI-ORGAN FAILURE [None]
  - ALOPECIA [None]
  - TOE AMPUTATION [None]
  - INTESTINAL ISCHAEMIA [None]
  - PERIPHERAL ISCHAEMIA [None]
  - BLISTER [None]
